FAERS Safety Report 16289659 (Version 1)
Quarter: 2019Q2

REPORT INFORMATION
  Report Type: Spontaneous
  Country: US (occurrence: US)
  Receive Date: 20190509
  Receipt Date: 20190509
  Transmission Date: 20190711
  Serious: No
  Sender: FDA-Public Use
  Company Number: US-APOTEX-2019AP011947

PATIENT
  Age: 82 Year
  Sex: Male

DRUGS (1)
  1. OLOPATADINE HYDROCHLORIDE OPHTHALMIC SOLUTION USP [Suspect]
     Active Substance: OLOPATADINE HYDROCHLORIDE
     Indication: OCULAR HYPERAEMIA
     Dosage: ONCE A DAY, ON EACH EYE, (QD)
     Route: 047
     Dates: start: 20190408

REACTIONS (3)
  - Drug hypersensitivity [Not Recovered/Not Resolved]
  - Laryngitis [Not Recovered/Not Resolved]
  - Dysphonia [Not Recovered/Not Resolved]

NARRATIVE: CASE EVENT DATE: 20190408
